FAERS Safety Report 4292101-6 (Version None)
Quarter: 2004Q1

REPORT INFORMATION
  Report Type: 
  Country: None (occurrence: None)
  Receive Date: 20040211
  Receipt Date: 20031209
  Transmission Date: 20041129
  Serious: No
  Sender: FDA-Public Use
  Company Number: US-GLAXOSMITHKLINE-A0442524A

PATIENT
  Age: 20 Year
  Sex: Female

DRUGS (3)
  1. LAMICTAL [Suspect]
     Indication: BIPOLAR DISORDER
     Route: 048
     Dates: start: 20030801, end: 20031204
  2. TOPAMAX [Concomitant]
     Dosage: 275MG PER DAY
  3. ASTHMA MEDICATION [Concomitant]

REACTIONS (3)
  - BALANCE DISORDER [None]
  - DEPRESSION [None]
  - RASH [None]
